FAERS Safety Report 4751744-3 (Version None)
Quarter: 2005Q3

REPORT INFORMATION
  Report Type: 
  Country: None (occurrence: None)
  Receive Date: 20050824
  Receipt Date: 20050708
  Transmission Date: 20060218
  Serious: Yes (Hospitalization)
  Sender: FDA-Public Use
  Company Number: US-SANOFI-SYNTHELABO-F01200501214

PATIENT
  Sex: Female
  Weight: 88 kg

DRUGS (18)
  1. CLOPIDOGREL [Suspect]
     Indication: ACUTE CORONARY SYNDROME
     Dosage: UNK
     Route: 065
     Dates: start: 20050606, end: 20050607
  2. ALTACE [Concomitant]
     Indication: HYPERTENSION
     Dosage: UNK
     Route: 065
     Dates: start: 20050605, end: 20050607
  3. LOPRESSOR [Concomitant]
     Indication: HYPERTENSION
     Dosage: UNK
     Dates: start: 20050605, end: 20050607
  4. LASIX [Concomitant]
     Indication: OEDEMA
     Dosage: UNK
     Dates: start: 20050605, end: 20050607
  5. LANTUS [Concomitant]
     Indication: DIABETES MELLITUS
     Dosage: UNK
     Dates: start: 20050605, end: 20050607
  6. PREVACID [Concomitant]
     Indication: GASTROOESOPHAGEAL REFLUX DISEASE
     Dosage: UNK
     Dates: start: 20050605
  7. GLYBURIDE [Concomitant]
     Indication: DIABETES MELLITUS
     Dosage: UNK
     Dates: start: 19990501, end: 20050607
  8. LIPITOR [Concomitant]
     Indication: HYPERLIPIDAEMIA
     Dosage: UNK
     Dates: start: 20050605, end: 20050607
  9. FLAGYL [Concomitant]
     Indication: WHITE BLOOD CELL COUNT INCREASED
     Dosage: UNK
     Dates: start: 20050607
  10. MEFOXIN [Concomitant]
     Indication: WHITE BLOOD CELL COUNT INCREASED
     Dosage: UNK
     Dates: start: 20050607
  11. ATENOLOL [Concomitant]
     Indication: HYPERTENSION
     Dosage: UNK
     Dates: start: 20050607
  12. ZOCOR [Concomitant]
     Indication: HYPERLIPIDAEMIA
     Dosage: UNK
     Dates: start: 20010601, end: 20050605
  13. MONOPRIL [Concomitant]
     Indication: HYPERTENSION
     Dosage: UNK
     Dates: start: 20021201, end: 20050605
  14. GLUCOPHAGE [Concomitant]
     Indication: DIABETES MELLITUS
     Dosage: UNK
     Dates: start: 19981101, end: 20050605
  15. INTEGRILIN [Concomitant]
     Dosage: UNK
     Dates: start: 20050605, end: 20050607
  16. ASPIRIN [Concomitant]
  17. TYLENOL [Concomitant]
  18. HEPARIN [Concomitant]

REACTIONS (5)
  - BILIARY TRACT DISORDER [None]
  - CHOLECYSTITIS ACUTE [None]
  - COAGULOPATHY [None]
  - HEPATIC FAILURE [None]
  - HEPATOCELLULAR DAMAGE [None]
